FAERS Safety Report 4325670-8 (Version None)
Quarter: 2004Q1

REPORT INFORMATION
  Report Type: 
  Country: None (occurrence: None)
  Receive Date: 20040324
  Receipt Date: 20040318
  Transmission Date: 20041129
  Serious: Yes (Life-Threatening)
  Sender: FDA-Public Use
  Company Number: 2004AP01532

PATIENT
  Age: 65 Year
  Sex: Male

DRUGS (4)
  1. ANAPEINE [Suspect]
     Indication: EPIDURAL ANAESTHESIA
     Dates: start: 20040227, end: 20040228
  2. ANAPEINE [Suspect]
     Indication: EPIDURAL ANAESTHESIA
     Dosage: 6 ML /HR ED
     Dates: start: 20040228, end: 20040228
  3. PENTAGIN [Concomitant]
  4. ATARAX [Concomitant]

REACTIONS (4)
  - BLOOD PRESSURE DECREASED [None]
  - DEPRESSED LEVEL OF CONSCIOUSNESS [None]
  - GLOSSOPTOSIS [None]
  - RESPIRATORY DEPRESSION [None]
